FAERS Safety Report 8425565-4 (Version None)
Quarter: 2012Q2

REPORT INFORMATION
  Report Type: 
  Country: None (occurrence: None)
  Receive Date: 20120605
  Receipt Date: 20120605
  Transmission Date: 20120825
  Serious: Yes (Other)
  Sender: FDA-Public Use
  Company Number: None

PATIENT
  Sex: Female
  Weight: 68.0396 kg

DRUGS (1)
  1. FLAGYL [Suspect]
     Indication: DIVERTICULUM
     Dosage: FROM MAY 6 TO 12

REACTIONS (4)
  - ABDOMINAL PAIN UPPER [None]
  - ULCER [None]
  - LOSS OF CONSCIOUSNESS [None]
  - DRUG EFFECT INCREASED [None]
